FAERS Safety Report 6848673-8 (Version None)
Quarter: 2010Q3

REPORT INFORMATION
  Report Type: 
  Country: None (occurrence: None)
  Receive Date: 20100716
  Receipt Date: 20070907
  Transmission Date: 20110219
  Serious: No
  Sender: FDA-Public Use
  Company Number: US-PFIZER INC-2007076049

PATIENT
  Sex: Female
  Weight: 70.9 kg

DRUGS (7)
  1. CHANTIX [Suspect]
     Indication: SMOKING CESSATION THERAPY
     Route: 061
     Dates: start: 20070831
  2. FENTANYL [Concomitant]
     Route: 061
  3. METHADONE HCL [Concomitant]
  4. PRILOSEC [Concomitant]
  5. PROMETHAZINE [Concomitant]
     Indication: NAUSEA
  6. ALBUTEROL [Concomitant]
     Route: 055
  7. ZOLPIDEM [Concomitant]

REACTIONS (4)
  - FEELING ABNORMAL [None]
  - INCREASED APPETITE [None]
  - NERVOUSNESS [None]
  - TOBACCO USER [None]
